FAERS Safety Report 10174918 (Version 1)
Quarter: 2014Q2

REPORT INFORMATION
  Report Type: Spontaneous
  Country: US (occurrence: US)
  Receive Date: 20140515
  Receipt Date: 20140515
  Transmission Date: 20141212
  Serious: Yes (Hospitalization)
  Sender: FDA-Public Use
  Company Number: US-MYLANLABS-2014S1010458

PATIENT
  Age: 41 Year
  Sex: Male

DRUGS (3)
  1. DOXYCYCLINE [Suspect]
     Indication: LEPTOSPIROSIS
     Route: 065
  2. DOXYCYCLINE [Suspect]
     Indication: OFF LABEL USE
     Route: 065
  3. PIPERACILLIN W/TAZOBACTAM          /01606301/ [Suspect]
     Indication: LEPTOSPIROSIS
     Route: 065

REACTIONS (4)
  - Jarisch-Herxheimer reaction [Recovering/Resolving]
  - Acute respiratory distress syndrome [Recovering/Resolving]
  - Septic shock [Recovering/Resolving]
  - Renal failure [Recovering/Resolving]
